FAERS Safety Report 6738564-5 (Version None)
Quarter: 2010Q2

REPORT INFORMATION
  Report Type: 
  Country: None (occurrence: None)
  Receive Date: 20100524
  Receipt Date: 20100514
  Transmission Date: 20101027
  Serious: Yes (Other)
  Sender: FDA-Public Use
  Company Number: JP-PFIZER INC-2010062195

PATIENT

DRUGS (3)
  1. NORVASC [Suspect]
     Route: 048
  2. SALOBEL [Concomitant]
     Route: 048
  3. PANALDINE [Concomitant]
     Route: 048

REACTIONS (1)
  - VISUAL ACUITY REDUCED [None]
